FAERS Safety Report 18466299 (Version 2)
Quarter: 2021Q1

REPORT INFORMATION
  Report Type: Report from Study
  Country: JP (occurrence: JP)
  Receive Date: 20201105
  Receipt Date: 20210325
  Transmission Date: 20210419
  Serious: Yes (Hospitalization)
  Sender: FDA-Public Use
  Company Number: JP-BAXTER-2020BAX022199

PATIENT
  Age: 40 Year
  Sex: Female

DRUGS (10)
  1. PEGFILGRASTIM (GENETICAL RECOMBINATION) [Suspect]
     Active Substance: PEGFILGRASTIM
     Dosage: SOLUTION
     Route: 058
     Dates: start: 20200212, end: 20200212
  2. DOXIL [Suspect]
     Active Substance: DOXORUBICIN HYDROCHLORIDE
     Indication: TRIPLE NEGATIVE BREAST CANCER
     Dosage: MOST RECENT DOSE PRIOR TO EVENT ONSET
     Route: 042
     Dates: start: 20191220, end: 20191220
  3. PEGFILGRASTIM (GENETICAL RECOMBINATION) [Suspect]
     Active Substance: PEGFILGRASTIM
     Dosage: CYCLE 4, VISIT 2, SOLUTION
     Route: 058
     Dates: start: 20200127, end: 20200127
  4. ENDOXAN 1G [Suspect]
     Active Substance: CYCLOPHOSPHAMIDE
     Indication: TRIPLE NEGATIVE BREAST CANCER
     Dosage: MOST RECENT DOSE PRIOR TO EVENT ONSET
     Route: 042
     Dates: start: 20191220, end: 20191220
  5. ATEZOLIZUMAB (GENETICAL RECOMBINATION) [Suspect]
     Active Substance: ATEZOLIZUMAB
     Dosage: MOST RECENT DOSE PRIOR TO EVENT ONSET
     Route: 042
     Dates: start: 20191220, end: 20191220
  6. ATEZOLIZUMAB (GENETICAL RECOMBINATION) [Suspect]
     Active Substance: ATEZOLIZUMAB
     Indication: TRIPLE NEGATIVE BREAST CANCER
     Route: 042
     Dates: start: 20190926
  7. PEGFILGRASTIM (GENETICAL RECOMBINATION) [Suspect]
     Active Substance: PEGFILGRASTIM
     Indication: TRIPLE NEGATIVE BREAST CANCER
     Dosage: CYCLE 4, VISIT 1, SOLUTION
     Route: 058
     Dates: start: 20191223, end: 20191223
  8. PACLITAXEL. [Concomitant]
     Active Substance: PACLITAXEL
     Indication: TRIPLE NEGATIVE BREAST CANCER
     Route: 042
     Dates: start: 20190926
  9. PACLITAXEL. [Concomitant]
     Active Substance: PACLITAXEL
     Route: 042
     Dates: start: 20191213, end: 20191213
  10. PEGFILGRASTIM (GENETICAL RECOMBINATION) [Suspect]
     Active Substance: PEGFILGRASTIM
     Route: 058
     Dates: start: 20200226, end: 20200226

REACTIONS (1)
  - Interstitial lung disease [Recovered/Resolved]

NARRATIVE: CASE EVENT DATE: 20191225
